FAERS Safety Report 8233177-0 (Version None)
Quarter: 2012Q1

REPORT INFORMATION
  Report Type: 
  Country: None (occurrence: None)
  Receive Date: 20120326
  Receipt Date: 20120321
  Transmission Date: 20120608
  Serious: No
  Sender: FDA-Public Use
  Company Number: US-PFIZER INC-2012073869

PATIENT
  Sex: Female
  Weight: 86.168 kg

DRUGS (5)
  1. CITALOPRAM [Concomitant]
     Indication: DEPRESSION
     Dosage: 40-50MG; DAILY
  2. TOPAMAX [Concomitant]
     Indication: MIGRAINE
     Dosage: 25 MG, DAILY
  3. PREMPRO [Suspect]
     Indication: MENOPAUSE
     Dosage: 0.625 MG, DAILY
     Dates: start: 20110101, end: 20120101
  4. TRAZODONE [Concomitant]
     Indication: DEPRESSION
     Dosage: 40-50MG; DAILY
  5. LANSOPRAZOLE [Concomitant]
     Indication: GASTROOESOPHAGEAL REFLUX DISEASE
     Dosage: UNK, DAILY

REACTIONS (1)
  - ANGER [None]
